FAERS Safety Report 19522034 (Version 3)
Quarter: 2021Q4

REPORT INFORMATION
  Report Type: Spontaneous
  Country: US (occurrence: US)
  Receive Date: 20210712
  Receipt Date: 20211005
  Transmission Date: 20220303
  Serious: Yes (Other)
  Sender: FDA-Public Use
  Company Number: US-PFIZER INC-2021418245

PATIENT
  Age: 78 Year
  Sex: Female

DRUGS (1)
  1. XELJANZ XR [Suspect]
     Active Substance: TOFACITINIB CITRATE
     Dosage: 11 MG

REACTIONS (6)
  - Pelvic fracture [Unknown]
  - Asthma [Not Recovered/Not Resolved]
  - Pain [Unknown]
  - Hypersensitivity [Unknown]
  - Eye disorder [Unknown]
  - Weight decreased [Unknown]
